FAERS Safety Report 7402882-8 (Version None)
Quarter: 2011Q2

REPORT INFORMATION
  Report Type: 
  Country: None (occurrence: None)
  Receive Date: 20110408
  Receipt Date: 20110107
  Transmission Date: 20111010
  Serious: No
  Sender: FDA-Public Use
  Company Number: US-BAYER-2011-030187

PATIENT
  Sex: Male
  Weight: 91 kg

DRUGS (2)
  1. ONE A DAY ENERGY [Suspect]
     Dosage: BOTTLE COUNT 100S
     Dates: start: 20110107, end: 20110107
  2. ONE A DAY ENERGY [Suspect]
     Indication: VITAMIN SUPPLEMENTATION
     Dosage: BOTTLE COUNT 100S
     Dates: start: 20101225, end: 20101225

REACTIONS (2)
  - NAUSEA [None]
  - VOMITING [None]
